FAERS Safety Report 7304409-8 (Version None)
Quarter: 2011Q1

REPORT INFORMATION
  Report Type: 
  Country: None (occurrence: None)
  Receive Date: 20110221
  Receipt Date: 20110207
  Transmission Date: 20110831
  Serious: Yes (Hospitalization)
  Sender: FDA-Public Use
  Company Number: IL-ELI_LILLY_AND_COMPANY-IL201102000623

PATIENT
  Sex: Female
  Weight: 81 kg

DRUGS (15)
  1. SIMOVIL [Concomitant]
     Indication: HYPERLIPIDAEMIA
     Dates: start: 20040101
  2. ASPIRIN [Concomitant]
     Dosage: 300 MG, DAILY (1/D)
     Dates: start: 20110107, end: 20110107
  3. ASPIRIN [Concomitant]
     Dosage: 75 MG, DAILY (1/D)
     Dates: start: 20110101
  4. LANTON [Concomitant]
     Indication: PROPHYLAXIS
  5. ALPROX [Concomitant]
  6. CYMBALTA [Concomitant]
  7. LORIVAN [Concomitant]
     Indication: PROPHYLAXIS
  8. AMARYL [Concomitant]
     Indication: DIABETES MELLITUS
  9. H7T-MC-TABY ACUTE CORONARY SYDROME [Suspect]
     Indication: ACUTE CORONARY SYNDROME
  10. VITAMIN B [Concomitant]
     Indication: PROPHYLAXIS
  11. ASPIRIN [Concomitant]
     Indication: PROPHYLAXIS
     Dosage: 75 MG, DAILY (1/D)
     Dates: start: 20030101, end: 20110109
  12. LOSARTAN [Concomitant]
     Indication: HYPERTENSION
     Dates: start: 20030101
  13. METFORMIN [Concomitant]
     Indication: DIABETES MELLITUS
     Dates: start: 19970101
  14. TRIBEMIN [Concomitant]
     Indication: PROPHYLAXIS
  15. MONOCORD [Concomitant]
     Dates: start: 20110109

REACTIONS (2)
  - ABDOMINAL PAIN [None]
  - VOMITING [None]
